FAERS Safety Report 18579949 (Version 1)
Quarter: 2020Q4

REPORT INFORMATION
  Report Type: Spontaneous
  Country: US (occurrence: US)
  Receive Date: 20201204
  Receipt Date: 20201204
  Transmission Date: 20210114
  Serious: No
  Sender: FDA-Public Use
  Company Number: US-NABRIVA THERAPEUTICS IRELAND DAC-US-2020NAB000016

PATIENT
  Sex: Male

DRUGS (3)
  1. LEFAMULIN. [Suspect]
     Active Substance: LEFAMULIN
     Indication: MYCOPLASMA GENITALIUM INFECTION
     Dosage: 600 MG, BID
     Route: 065
     Dates: start: 2020
  2. MINOCYCLINE [Concomitant]
     Active Substance: MINOCYCLINE HYDROCHLORIDE
     Indication: MYCOPLASMA GENITALIUM INFECTION
     Dosage: UNK
     Route: 065
     Dates: start: 202004
  3. DOXYCYCLINE. [Concomitant]
     Active Substance: DOXYCYCLINE
     Indication: MYCOPLASMA GENITALIUM INFECTION
     Dosage: UNK
     Route: 065
     Dates: start: 202004

REACTIONS (2)
  - Therapeutic product effective for unapproved indication [Unknown]
  - Off label use [Unknown]

NARRATIVE: CASE EVENT DATE: 2020
